FAERS Safety Report 15529667 (Version 1)
Quarter: 2018Q4

REPORT INFORMATION
  Report Type: Spontaneous
  Country: US (occurrence: US)
  Receive Date: 20181018
  Receipt Date: 20181018
  Transmission Date: 20190205
  Serious: No
  Sender: FDA-Public Use
  Company Number: US-AMGEN-USASP2018118755

PATIENT
  Sex: Female

DRUGS (1)
  1. REPATHA [Suspect]
     Active Substance: EVOLOCUMAB
     Indication: ARTERIOSCLEROSIS
     Dosage: 140 MG, Q2WK
     Route: 065

REACTIONS (5)
  - Gait inability [Unknown]
  - Myalgia [Not Recovered/Not Resolved]
  - Blood glucose increased [Unknown]
  - Injection site discomfort [Unknown]
  - Glycosylated haemoglobin increased [Unknown]
